FAERS Safety Report 7719443-3 (Version None)
Quarter: 2011Q3

REPORT INFORMATION
  Report Type: 
  Country: None (occurrence: None)
  Receive Date: 20110830
  Receipt Date: 20110822
  Transmission Date: 20111222
  Serious: Yes (Hospitalization)
  Sender: FDA-Public Use
  Company Number: PHHY2011US17307

PATIENT
  Sex: Female
  Weight: 49.887 kg

DRUGS (1)
  1. GILENYA [Suspect]
     Indication: RELAPSING-REMITTING MULTIPLE SCLEROSIS
     Dosage: 0.5 MG, DAILY
     Route: 048
     Dates: start: 20110222

REACTIONS (5)
  - ASTHENIA [None]
  - PAIN IN EXTREMITY [None]
  - SOMNOLENCE [None]
  - CHEST PAIN [None]
  - FATIGUE [None]
